FAERS Safety Report 23151616 (Version 1)
Quarter: 2023Q4

REPORT INFORMATION
  Report Type: Spontaneous
  Country: US (occurrence: US)
  Receive Date: 20231107
  Receipt Date: 20231107
  Transmission Date: 20240110
  Serious: No
  Sender: FDA-Public Use
  Company Number: US-BEIGENE-BGN-2023-012856

PATIENT

DRUGS (2)
  1. BRUKINSA [Suspect]
     Active Substance: ZANUBRUTINIB
     Indication: Waldenstrom^s macroglobulinaemia
     Dosage: 80 MILLIGRAM
     Route: 048
  2. RITUXIMAB [Concomitant]
     Active Substance: RITUXIMAB

REACTIONS (3)
  - Respiratory disorder [Not Recovered/Not Resolved]
  - Sinusitis [Not Recovered/Not Resolved]
  - Aphonia [Not Recovered/Not Resolved]
